FAERS Safety Report 12001263 (Version 1)
Quarter: 2016Q1

REPORT INFORMATION
  Report Type: Spontaneous
  Country: CN (occurrence: CN)
  Receive Date: 20160204
  Receipt Date: 20160204
  Transmission Date: 20160526
  Serious: Yes (Hospitalization)
  Sender: FDA-Public Use
  Company Number: CN-ELI_LILLY_AND_COMPANY-CN201512003945

PATIENT
  Age: 64 Year
  Sex: Male
  Weight: 60 kg

DRUGS (7)
  1. HUMULIN 70/30 [Suspect]
     Active Substance: INSULIN HUMAN
     Indication: PRODUCT USED FOR UNKNOWN INDICATION
     Dosage: UNK, UNKNOWN
     Route: 058
     Dates: start: 201507
  2. HUMULIN 70/30 [Suspect]
     Active Substance: INSULIN HUMAN
     Dosage: 10 U, EACH MORNING
     Route: 058
     Dates: start: 201508
  3. HUMULIN 70/30 [Suspect]
     Active Substance: INSULIN HUMAN
     Dosage: 12 U, EACH MORNING
     Route: 058
     Dates: start: 201508
  4. HUMULIN 70/30 [Suspect]
     Active Substance: INSULIN HUMAN
     Dosage: 10 U, EACH EVENING
     Route: 058
     Dates: start: 201508
  5. OMEPRAZOLE. [Concomitant]
     Active Substance: OMEPRAZOLE
     Indication: PRODUCT USED FOR UNKNOWN INDICATION
     Dosage: UNK, UNKNOWN
  6. HUMULIN 70/30 [Suspect]
     Active Substance: INSULIN HUMAN
     Dosage: UNK, TID
     Route: 058
     Dates: start: 201508
  7. HUMULIN 70/30 [Suspect]
     Active Substance: INSULIN HUMAN
     Dosage: 10 U, EACH EVENING
     Route: 058
     Dates: start: 201508

REACTIONS (3)
  - Vision blurred [Unknown]
  - Hypoglycaemia [Unknown]
  - Hyperglycaemia [Unknown]

NARRATIVE: CASE EVENT DATE: 201508
